FAERS Safety Report 25969369 (Version 1)
Quarter: 2025Q4

REPORT INFORMATION
  Report Type: Spontaneous
  Country: US (occurrence: None)
  Receive Date: 20251027
  Receipt Date: 20251027
  Transmission Date: 20260117
  Serious: Yes (Other)
  Sender: FDA-CTU
  Company Number: None

PATIENT
  Age: 74 Year
  Sex: Male

DRUGS (1)
  1. XDEMVY [Suspect]
     Active Substance: LOTILANER
     Indication: Ocular demodicosis
     Dates: start: 20250913

REACTIONS (4)
  - Eye irritation [None]
  - Visual impairment [None]
  - Vision blurred [None]
  - Eye pain [None]

NARRATIVE: CASE EVENT DATE: 20251021
